FAERS Safety Report 14689859 (Version 1)
Quarter: 2018Q1

REPORT INFORMATION
  Report Type: Spontaneous
  Country: US (occurrence: US)
  Receive Date: 20180328
  Receipt Date: 20180328
  Transmission Date: 20180509
  Serious: No
  Sender: FDA-Public Use
  Company Number: US-SMITH AND NEPHEW, INC-2017SMT00584

PATIENT
  Sex: Female

DRUGS (2)
  1. UNSPECIFIED HONEY PRODUCT [Suspect]
     Active Substance: UNSPECIFIED INGREDIENT
     Indication: RADIATION INJURY
     Dosage: UNK
     Route: 061
     Dates: start: 20171205, end: 201712
  2. COLLAGENASE SANTYL [Suspect]
     Active Substance: COLLAGENASE CLOSTRIDIUM HISTOLYTICUM
     Indication: RADIATION INJURY
     Dosage: UNK UNK, 1X/DAY
     Route: 061
     Dates: start: 20171205, end: 20171205

REACTIONS (3)
  - Application site pain [Recovered/Resolved]
  - Application site vesicles [Unknown]
  - Application site erythema [Unknown]

NARRATIVE: CASE EVENT DATE: 20171205
